FAERS Safety Report 5700409-X (Version None)
Quarter: 2008Q2

REPORT INFORMATION
  Report Type: 
  Country: None (occurrence: None)
  Receive Date: 20080408
  Receipt Date: 20080408
  Transmission Date: 20081010
  Serious: Yes (Hospitalization, Other)
  Sender: FDA-Public Use
  Company Number: None

PATIENT
  Age: 50 Year
  Sex: Male
  Weight: 63.5036 kg

DRUGS (5)
  1. XANAX [Suspect]
  2. RISPERDAL [Suspect]
  3. CLONOPIN [Suspect]
  4. LEXAPRO [Suspect]
  5. MONVAISE-?- [Suspect]

REACTIONS (4)
  - ACTIVITIES OF DAILY LIVING IMPAIRED [None]
  - DRUG DEPENDENCE [None]
  - FAMILY STRESS [None]
  - LOSS OF EMPLOYMENT [None]
